FAERS Safety Report 16320025 (Version 1)
Quarter: 2019Q2

REPORT INFORMATION
  Report Type: Spontaneous
  Country: US (occurrence: US)
  Receive Date: 20190515
  Receipt Date: 20190515
  Transmission Date: 20190711
  Serious: No
  Sender: FDA-Public Use
  Company Number: None

PATIENT
  Age: 7 Day
  Sex: Female
  Weight: 1.6 kg

DRUGS (1)
  1. CAFFEINE CITRATE ORAL SOLUTION [Suspect]
     Active Substance: CAFFEINE CITRATE
     Indication: INFANTILE APNOEA
     Route: 048
     Dates: start: 20190507

REACTIONS (4)
  - Product appearance confusion [None]
  - Intercepted product administration error [None]
  - Wrong technique in product usage process [None]
  - Intercepted product storage error [None]

NARRATIVE: CASE EVENT DATE: 20190514
